FAERS Safety Report 24796839 (Version 2)
Quarter: 2025Q1

REPORT INFORMATION
  Report Type: Spontaneous
  Country: US (occurrence: US)
  Receive Date: 20250101
  Receipt Date: 20250213
  Transmission Date: 20250409
  Serious: Yes (Other)
  Sender: PURDUE
  Company Number: US-PURDUE-USA-2024-0314385

PATIENT
  Sex: Male

DRUGS (3)
  1. DEXTROAMPHETAMINE SACCHARATE, AMPHETAMINE ASPARTATE, DEXTROAMPHETAMINE [Suspect]
     Active Substance: AMPHETAMINE ASPARTATE\AMPHETAMINE SULFATE\DEXTROAMPHETAMINE SACCHARATE\DEXTROAMPHETAMINE SULFATE
     Indication: Product used for unknown indication
     Route: 048
  2. METHAMPHETAMINE [Suspect]
     Active Substance: METHAMPHETAMINE
     Indication: Product used for unknown indication
     Route: 065
  3. ALCOHOL [Suspect]
     Active Substance: ALCOHOL
     Indication: Product used for unknown indication
     Route: 065

REACTIONS (13)
  - Road traffic accident [Unknown]
  - Impaired driving ability [Unknown]
  - Mental disorder [Unknown]
  - Bipolar disorder [Unknown]
  - Hallucination [Unknown]
  - Drug dependence [Unknown]
  - Drug abuse [Unknown]
  - Substance use disorder [Unknown]
  - Abnormal behaviour [Unknown]
  - Paranoia [Unknown]
  - Substance-induced psychotic disorder [Unknown]
  - Homicide [Unknown]
  - Alcohol use disorder [Unknown]

NARRATIVE: CASE EVENT DATE: 20231206
